FAERS Safety Report 24559412 (Version 1)
Quarter: 2024Q4

REPORT INFORMATION
  Report Type: Spontaneous
  Country: US (occurrence: US)
  Receive Date: 20241029
  Receipt Date: 20241029
  Transmission Date: 20250115
  Serious: No
  Sender: Haleon PLC
  Company Number: US-HALEON-2205279

PATIENT
  Age: 10 Month
  Sex: Female

DRUGS (1)
  1. NEXIUM 24HR [Suspect]
     Active Substance: ESOMEPRAZOLE MAGNESIUM
     Indication: Product used for unknown indication
     Dosage: EXPIRY DATE: 2027-01

REACTIONS (1)
  - Accidental exposure to product packaging by child [Unknown]

NARRATIVE: CASE EVENT DATE: 20241028
